FAERS Safety Report 4392964-X (Version None)
Quarter: 2004Q3

REPORT INFORMATION
  Report Type: 
  Country: None (occurrence: None)
  Receive Date: 20040702
  Receipt Date: 20040419
  Transmission Date: 20050211
  Serious: Yes (Other)
  Sender: FDA-Public Use
  Company Number: 2004UW07855

PATIENT
  Age: 56 Year
  Sex: Female
  Weight: 88.4514 kg

DRUGS (7)
  1. CRESTOR [Suspect]
     Indication: BLOOD CHOLESTEROL INCREASED
     Dates: start: 20040401
  2. MONOPRIL [Concomitant]
  3. SYNTHROID [Concomitant]
  4. FLUOXETINE HYDROCHLORIDE [Concomitant]
  5. PROTONIX [Concomitant]
  6. NABUMETONE [Concomitant]
  7. TRAZODONE HCL [Concomitant]

REACTIONS (3)
  - ARTHRALGIA [None]
  - ERYTHEMA [None]
  - RASH [None]
